FAERS Safety Report 25058368 (Version 1)
Quarter: 2025Q1

REPORT INFORMATION
  Report Type: Spontaneous
  Country: US (occurrence: US)
  Receive Date: 20250310
  Receipt Date: 20250310
  Transmission Date: 20250408
  Serious: No
  Sender: PFIZER
  Company Number: US-PFIZER INC-202500051796

PATIENT
  Sex: Female

DRUGS (4)
  1. MORPHINE SULFATE [Suspect]
     Active Substance: MORPHINE SULFATE
  2. PHENELZINE SULFATE [Suspect]
     Active Substance: PHENELZINE SULFATE
  3. BENADRYL [Suspect]
     Active Substance: DIPHENHYDRAMINE HYDROCHLORIDE
  4. STADOL [Suspect]
     Active Substance: BUTORPHANOL TARTRATE

REACTIONS (1)
  - Drug hypersensitivity [Unknown]
